FAERS Safety Report 4413005-1 (Version None)
Quarter: 2004Q3

REPORT INFORMATION
  Report Type: 
  Country: None (occurrence: None)
  Receive Date: 20040802
  Receipt Date: 20040427
  Transmission Date: 20050211
  Serious: No
  Sender: FDA-Public Use
  Company Number: US-GLAXOSMITHKLINE-A0508675A

PATIENT
  Age: 1 Year

DRUGS (2)
  1. ZANTAC [Suspect]
     Route: 048
  2. UNKNOWN MEDICATION [Suspect]

REACTIONS (2)
  - DRUG INTERACTION [None]
  - HYPERSENSITIVITY [None]
